FAERS Safety Report 8051596-2 (Version None)
Quarter: 2012Q1

REPORT INFORMATION
  Report Type: 
  Country: None (occurrence: None)
  Receive Date: 20120118
  Receipt Date: 20120109
  Transmission Date: 20120608
  Serious: Yes (Hospitalization)
  Sender: FDA-Public Use
  Company Number: DK-BIOGENIDEC-2012BI000830

PATIENT
  Age: 28 Year
  Sex: Female

DRUGS (2)
  1. TYSABRI [Suspect]
     Indication: MULTIPLE SCLEROSIS
     Route: 042
     Dates: start: 20070508, end: 20110323
  2. PREGABALIN [Concomitant]
     Indication: NEURALGIA
     Route: 048
     Dates: start: 20110217, end: 20110518

REACTIONS (1)
  - PANCREATITIS ACUTE [None]
